FAERS Safety Report 7361098-4 (Version None)
Quarter: 2011Q1

REPORT INFORMATION
  Report Type: 
  Country: None (occurrence: None)
  Receive Date: 20110318
  Receipt Date: 20110315
  Transmission Date: 20110831
  Serious: Yes (Death, Hospitalization, Other)
  Sender: FDA-Public Use
  Company Number: PHEH2009US15496

PATIENT
  Sex: Female

DRUGS (2)
  1. FEMARA [Suspect]
     Indication: BREAST CANCER
     Dosage: 2.5 MG DAILY
     Route: 048
  2. NOVOLIN 70/30 [Concomitant]

REACTIONS (12)
  - MALAISE [None]
  - DEATH [None]
  - CYSTIC FIBROSIS [None]
  - ABDOMINAL PAIN UPPER [None]
  - VOMITING [None]
  - DIABETIC FOOT [None]
  - BRONCHITIS [None]
  - NAUSEA [None]
  - LARYNGITIS [None]
  - ARTHRITIS [None]
  - ASTHMA [None]
  - KETOACIDOSIS [None]
